FAERS Safety Report 6657694-X (Version None)
Quarter: 2010Q1

REPORT INFORMATION
  Report Type: 
  Country: None (occurrence: None)
  Receive Date: 20100326
  Receipt Date: 20100318
  Transmission Date: 20100710
  Serious: Yes (Other)
  Sender: FDA-Public Use
  Company Number: 2010030046

PATIENT
  Age: 38 Year
  Sex: Female
  Weight: 64.8644 kg

DRUGS (6)
  1. ASTEPRO [Suspect]
     Indication: RHINITIS ALLERGIC
     Dosage: 1096 MCG 9548 MCG, 2 IN 1 D), IN; 822 MCG (411 MCG, 2 IN 1 D), IN
     Route: 045
     Dates: start: 20090901, end: 20100101
  2. ASTEPRO [Suspect]
     Indication: RHINITIS ALLERGIC
     Dosage: 1096 MCG 9548 MCG, 2 IN 1 D), IN; 822 MCG (411 MCG, 2 IN 1 D), IN
     Route: 045
     Dates: start: 20100101
  3. CARBATROL [Concomitant]
  4. ORAL CONTRACEPTIVE [Concomitant]
  5. CLONAZEPAM [Concomitant]
  6. ZONEGRAN [Concomitant]

REACTIONS (4)
  - CONVULSION [None]
  - DRUG EFFECT DECREASED [None]
  - NUCLEAR MAGNETIC RESONANCE IMAGING BRAIN ABNORMAL [None]
  - SCAR [None]
